FAERS Safety Report 7494330-7 (Version None)
Quarter: 2011Q2

REPORT INFORMATION
  Report Type: 
  Country: None (occurrence: None)
  Receive Date: 20110520
  Receipt Date: 20110516
  Transmission Date: 20111010
  Serious: Yes (Hospitalization, Other)
  Sender: FDA-Public Use
  Company Number: JP-PFIZER INC-2010094415

PATIENT
  Age: 59 Year
  Sex: Male
  Weight: 49 kg

DRUGS (13)
  1. TRYPTANOL [Concomitant]
     Dosage: 10 MG, 3X/DAY
     Route: 048
     Dates: start: 20100720
  2. MUCOSIL-10 [Concomitant]
     Indication: UPPER RESPIRATORY TRACT INFLAMMATION
     Dosage: 250 MG, 3X/DAY
     Route: 048
     Dates: start: 20100629, end: 20100630
  3. METHYCOBAL [Concomitant]
     Dosage: UNK
     Route: 048
  4. LYRICA [Suspect]
     Dosage: 75 MG AND 150 MG; DAILY
     Route: 048
     Dates: start: 20100705, end: 20100712
  5. TRYPTANOL [Concomitant]
     Indication: POST HERPETIC NEURALGIA
     Dosage: 10 MG, 2X/DAY
     Route: 048
     Dates: start: 20100629, end: 20100719
  6. LYRICA [Suspect]
     Dosage: 150 MG, 2X/DAY
     Route: 048
     Dates: start: 20100713, end: 20100720
  7. FLUMARIN [Concomitant]
     Indication: INFECTION PROPHYLAXIS
     Dosage: 1 G, 2X/DAY
     Route: 042
     Dates: start: 20100701, end: 20100705
  8. LYRICA [Suspect]
     Dosage: 75 MG, 2X/DAY
     Route: 048
     Dates: start: 20100630, end: 20100704
  9. FAMOTIDINE [Concomitant]
     Indication: GASTRIC ULCER
     Dosage: 20 MG, 1X/DAY
     Route: 048
     Dates: start: 20100629
  10. LYRICA [Suspect]
     Indication: POST HERPETIC NEURALGIA
     Dosage: 75 MG, 1X/DAY
     Route: 048
     Dates: start: 20100629, end: 20100629
  11. VOLTAREN-XR [Concomitant]
     Indication: POST HERPETIC NEURALGIA
     Dosage: 37.5 MG, 2X/DAY
     Route: 048
     Dates: start: 20100629
  12. MUCOSIL-10 [Concomitant]
     Indication: INFECTION PROPHYLAXIS
     Dosage: 250 MG, 3X/DAY
     Route: 048
     Dates: start: 20100706, end: 20100719
  13. CYTOTEC [Concomitant]
     Dosage: UNK
     Route: 048

REACTIONS (2)
  - BLOOD POTASSIUM INCREASED [None]
  - BLOOD CREATININE INCREASED [None]
